FAERS Safety Report 13617822 (Version 1)
Quarter: 2017Q2

REPORT INFORMATION
  Report Type: Spontaneous
  Country: US (occurrence: US)
  Receive Date: 20170606
  Receipt Date: 20170606
  Transmission Date: 20170830
  Serious: No
  Sender: FDA-Public Use
  Company Number: US-TARO-2017TAR00366

PATIENT
  Age: 60 Year
  Sex: Female
  Weight: 71.66 kg

DRUGS (12)
  1. FLUOCINOLONE ACETONIDE TOPICAL SCALP OIL 0.01% [Suspect]
     Active Substance: FLUOCINOLONE ACETONIDE
     Dosage: UNK, 1X/DAY (APPLIED FOR 6 HOURS)
     Route: 061
     Dates: start: 20170507
  2. OMEGA FISH OIL [Concomitant]
     Active Substance: FISH OIL\OMEGA-3 FATTY ACIDS
  3. UNSPECIFIED ANTIHISTAMINES [Concomitant]
     Dosage: UNK, AS NEEDED
  4. CALCIUM CITRATE MAGNESIUM WITH VITAMIN D3 [Concomitant]
     Dosage: UNK, 3X/DAY
  5. ASHWAGANDHA [Concomitant]
     Active Substance: HERBALS
     Dosage: UNK, 1X/DAY
  6. GABA EASE [Concomitant]
  7. VITAMIN B12 [Concomitant]
     Active Substance: CYANOCOBALAMIN
     Dosage: UNK, 1X/DAY
  8. UNSPECIFIED PROBIOTIC [Concomitant]
     Dosage: UNK, 2X/DAY
  9. ESTROVEN [Concomitant]
     Active Substance: DIETARY SUPPLEMENT
     Dosage: UNK, 1X/DAY
  10. FLUOCINOLONE ACETONIDE TOPICAL SCALP OIL 0.01% [Suspect]
     Active Substance: FLUOCINOLONE ACETONIDE
     Indication: DANDRUFF
     Dosage: UNK, 1X/DAY (APPLIED FOR 4 HOURS)
     Route: 061
     Dates: start: 20170420, end: 20170425
  11. UNSPECIFIED MULTIVITAMIN [Concomitant]
  12. CARVEDILOL. [Concomitant]
     Active Substance: CARVEDILOL
     Dosage: 6.25 MG, 2X/DAY

REACTIONS (5)
  - Pruritus [Recovered/Resolved]
  - Therapeutic response unexpected [Unknown]
  - Scab [Recovering/Resolving]
  - Dandruff [Recovering/Resolving]
  - Off label use [Not Recovered/Not Resolved]

NARRATIVE: CASE EVENT DATE: 2017
